FAERS Safety Report 17835875 (Version 1)
Quarter: 2020Q2

REPORT INFORMATION
  Report Type: Spontaneous
  Country: US (occurrence: US)
  Receive Date: 20200528
  Receipt Date: 20200528
  Transmission Date: 20200714
  Serious: Yes (Hospitalization, Other)
  Sender: FDA-Public Use
  Company Number: US-GILEAD-2020-0468929

PATIENT
  Age: 57 Year
  Sex: Female

DRUGS (1)
  1. EPCLUSA [Suspect]
     Active Substance: SOFOSBUVIR\VELPATASVIR
     Indication: PRODUCT USED FOR UNKNOWN INDICATION
     Route: 065

REACTIONS (18)
  - Dysphonia [Not Recovered/Not Resolved]
  - Chest pain [Unknown]
  - Mental impairment [Unknown]
  - Suicidal ideation [Unknown]
  - Musculoskeletal disorder [Not Recovered/Not Resolved]
  - Asthenia [Not Recovered/Not Resolved]
  - Gait inability [Unknown]
  - Fall [Unknown]
  - Inflammation [Unknown]
  - Pain [Unknown]
  - Hyperhidrosis [Unknown]
  - Malaise [Not Recovered/Not Resolved]
  - Mental disorder [Not Recovered/Not Resolved]
  - Presyncope [Unknown]
  - Muscular weakness [Unknown]
  - Muscle atrophy [Not Recovered/Not Resolved]
  - Injury [Not Recovered/Not Resolved]
  - Dyspnoea [Unknown]
